FAERS Safety Report 21705784 (Version 1)
Quarter: 2022Q4

REPORT INFORMATION
  Report Type: Report from Study
  Country: KR (occurrence: KR)
  Receive Date: 20221209
  Receipt Date: 20221209
  Transmission Date: 20230112
  Serious: Yes (Hospitalization, Other)
  Sender: FDA-Public Use
  Company Number: KR-TAKEDA-2021TJP010538

PATIENT

DRUGS (23)
  1. NIRAPARIB [Suspect]
     Active Substance: NIRAPARIB
     Indication: Ovarian cancer recurrent
     Dosage: 200 MILLIGRAM, QD
     Route: 048
     Dates: start: 20210113, end: 20210120
  2. NIRAPARIB [Suspect]
     Active Substance: NIRAPARIB
     Indication: Malignant peritoneal neoplasm
     Dosage: 100 MILLIGRAM, QD
     Route: 048
     Dates: start: 20210121, end: 20210216
  3. NIRAPARIB [Suspect]
     Active Substance: NIRAPARIB
     Indication: Fallopian tube cancer
     Dosage: UNK
     Route: 048
  4. ZOLMIN (TRIAZOLAM) [Concomitant]
     Indication: Insomnia
     Dosage: 0.125 MILLIGRAM, QD
     Route: 048
     Dates: start: 20210120, end: 20210202
  5. ZOLMIN (TRIAZOLAM) [Concomitant]
     Indication: Prophylaxis
     Dosage: 0.125 MILLIGRAM, QD
     Route: 048
     Dates: start: 20210221, end: 20210304
  6. ZOLMIN (TRIAZOLAM) [Concomitant]
     Dosage: 1.75 MILLIGRAM, QD
     Route: 048
     Dates: start: 20210305, end: 20210318
  7. CEFTRIAXONE [Concomitant]
     Active Substance: CEFTRIAXONE
     Indication: Prophylaxis
     Dosage: 2 GRAM, QD
     Route: 042
     Dates: start: 20210220, end: 20210304
  8. ULTRAVIST [Concomitant]
     Active Substance: IOPROMIDE
     Indication: Prophylaxis
     Dosage: 30 MILLILITER, QD
     Route: 042
     Dates: start: 20210305, end: 20210305
  9. TRIDOL (TRAMADOL HCL) [Concomitant]
     Indication: Prophylaxis
     Dosage: 100 MILLIGRAM, QD
     Route: 042
     Dates: start: 20210221, end: 20210221
  10. ORNITHINE ASPARTATE [Concomitant]
     Active Substance: ORNITHINE ASPARTATE
     Indication: Prophylaxis
     Dosage: 1000 MILLIGRAM, QD
     Route: 042
     Dates: start: 20210220, end: 20210304
  11. OXYCODONE HYDROCHLORIDE [Concomitant]
     Active Substance: OXYCODONE HYDROCHLORIDE
     Indication: Metastases to liver
     Dosage: 2 MILLIGRAM
     Route: 042
     Dates: start: 20210222, end: 20210304
  12. MAGNESIUM HYDROXIDE [Concomitant]
     Active Substance: MAGNESIUM HYDROXIDE
     Indication: Prophylaxis
     Dosage: 2000 MILLIGRAM, QD
     Route: 048
     Dates: start: 20210122, end: 20210222
  13. METRONIDAZOLE [Concomitant]
     Active Substance: METRONIDAZOLE
     Indication: Prophylaxis
     Dosage: 1000 MILLIGRAM, QD
     Route: 042
     Dates: start: 20210225, end: 20210304
  14. MECKOOL [Concomitant]
     Indication: Prophylaxis
     Dosage: 20 MILLIGRAM, QOD
     Route: 042
     Dates: start: 20210224, end: 20210228
  15. DUPHALAC [Concomitant]
     Active Substance: LACTULOSE
     Indication: Prophylaxis
     Dosage: 45 MILLILITER, QD
     Route: 048
     Dates: start: 20210305, end: 20210311
  16. K CONTIN [Concomitant]
     Indication: Prophylaxis
     Dosage: 600 MILLIGRAM, QD
     Route: 048
     Dates: start: 20210301, end: 20210303
  17. GASTER [Concomitant]
     Active Substance: FAMOTIDINE
     Indication: Prophylaxis
     Dosage: 40 MILLIGRAM, QD
     Route: 048
     Dates: start: 20210305, end: 20210311
  18. ESROBAN [Concomitant]
     Indication: Prophylaxis
     Dosage: 10 GRAM, QD
     Route: 062
     Dates: start: 20210303, end: 20210303
  19. PHENIRAMINE MALEATE [Concomitant]
     Active Substance: PHENIRAMINE MALEATE
     Indication: Prophylaxis
     Dosage: 4 MILLIGRAM, QD
     Route: 042
     Dates: start: 20210221, end: 20210221
  20. BESZYME [Concomitant]
     Indication: Prophylaxis
     Dosage: UNK UNK, QD
     Route: 048
     Dates: start: 20210304, end: 20210304
  21. HEPARIN SODIUM [Concomitant]
     Active Substance: HEPARIN SODIUM
     Indication: Prophylaxis
     Dosage: 300 INTERNATIONAL UNIT, QD
     Route: 042
     Dates: start: 20210220, end: 20210220
  22. SMOFLIPID [Concomitant]
     Active Substance: FISH OIL\MEDIUM-CHAIN TRIGLYCERIDES\OLIVE OIL\SOYBEAN OIL
     Indication: Prophylaxis
     Dosage: 250 MILLILITER
     Route: 042
     Dates: start: 20210228, end: 20210305
  23. SMOFLIPID [Concomitant]
     Active Substance: FISH OIL\MEDIUM-CHAIN TRIGLYCERIDES\OLIVE OIL\SOYBEAN OIL
     Dosage: 500 MILLILITER
     Route: 042
     Dates: start: 20210225, end: 20210304

REACTIONS (1)
  - Metastases to liver [Not Recovered/Not Resolved]

NARRATIVE: CASE EVENT DATE: 20210216
